FAERS Safety Report 8805108 (Version 1)
Quarter: 2012Q4

REPORT INFORMATION
  Report Type: 
  Country: US (occurrence: US)
  Receive Date: 20120924
  Receipt Date: 20120924
  Transmission Date: 20130627
  Serious: No
  Sender: FDA-Public Use
  Company Number: US-ALLERGAN-1210400US

PATIENT
  Age: 85 Year
  Sex: Female

DRUGS (3)
  1. LUMIGAN� 0.01% [Suspect]
     Indication: INCREASED INTRAOCULAR PRESSURE
     Dosage: UNK UNK, qhs
     Route: 047
     Dates: start: 20120726
  2. ALPHAGAN P .1% [Concomitant]
     Indication: IOP INCREASED
     Dosage: 2 Gtt, bid
     Route: 047
     Dates: start: 201207
  3. TIMOLOL MALEATE [Concomitant]
     Indication: IOP INCREASED
     Dosage: UNK
     Dates: start: 201207

REACTIONS (3)
  - Foreign body sensation in eyes [Recovered/Resolved]
  - Eye pain [Recovered/Resolved]
  - Ocular hyperaemia [Recovered/Resolved]
